FAERS Safety Report 6405891-0 (Version None)
Quarter: 2009Q4

REPORT INFORMATION
  Report Type: 
  Country: None (occurrence: None)
  Receive Date: 20091016
  Receipt Date: 20091016
  Transmission Date: 20100525
  Serious: Yes (Life-Threatening)
  Sender: FDA-Public Use
  Company Number: None

PATIENT
  Sex: Female
  Weight: 84.6412 kg

DRUGS (5)
  1. SAVELLA [Suspect]
     Indication: FIBROMYALGIA
     Dosage: 12.5MG BID PO
     Route: 048
     Dates: start: 20090901, end: 20090917
  2. TRAZODONE [Concomitant]
  3. PLAQUENIL [Concomitant]
  4. FOSAMAX PLUS D [Concomitant]
  5. PREDINOSONE [Concomitant]

REACTIONS (2)
  - DEPRESSION [None]
  - SUICIDAL IDEATION [None]
